FAERS Safety Report 20506701 (Version 1)
Quarter: 2022Q1

REPORT INFORMATION
  Report Type: Spontaneous
  Country: US (occurrence: None)
  Receive Date: 20220222
  Receipt Date: 20220222
  Transmission Date: 20220423
  Serious: Yes (Death)
  Sender: FDA-Public Use
  Company Number: None

PATIENT
  Age: 90 Year
  Sex: Male
  Weight: 87 kg

DRUGS (22)
  1. ABIRATERONE [Suspect]
     Active Substance: ABIRATERONE
     Indication: Prostate cancer
     Dosage: FREQUENCY : DAILY;?
     Route: 048
     Dates: start: 20210317, end: 20220214
  2. TYLENOL COLD MAX 10-5-325MG [Concomitant]
  3. NORVASC [Concomitant]
     Active Substance: AMLODIPINE BESYLATE
  4. AMOXICILLIN [Concomitant]
     Active Substance: AMOXICILLIN
  5. ASPIRIN [Concomitant]
     Active Substance: ASPIRIN
  6. LIPITOR 80MG [Concomitant]
  7. ROCALTROL 0.25MCG [Concomitant]
  8. OSCAL 500/200MG [Concomitant]
  9. CALCIUM +VITAMIN D 500-200MG [Concomitant]
  10. VITAMIN D-3 125MCG [Concomitant]
  11. CHOLESTEROL TRIO 250-400-5MG [Concomitant]
  12. DOCUSATE [Concomitant]
     Active Substance: DOCUSATE
  13. FERROUS GLUCONATE 239MG [Concomitant]
  14. SYNTHROID [Concomitant]
     Active Substance: LEVOTHYROXINE SODIUM
  15. MEDROL [Concomitant]
     Active Substance: METHYLPREDNISOLONE
  16. TOPROL XL [Concomitant]
     Active Substance: METOPROLOL SUCCINATE
  17. FLOMAX 0.4MG [Concomitant]
  18. DEMADEX 10MG [Concomitant]
  19. COUMADIN 3MG AND 1MG [Concomitant]
  20. BICALUTAMIDE [Concomitant]
     Active Substance: BICALUTAMIDE
  21. PREDNISONE 5MG, FUROSEMIDE 20MG [Concomitant]
  22. ALLOPURINOL 100MG, GENTEAL SEVERE 0.3% [Concomitant]

REACTIONS (1)
  - Renal failure [None]

NARRATIVE: CASE EVENT DATE: 20220214
